FAERS Safety Report 6695375-7 (Version None)
Quarter: 2010Q2

REPORT INFORMATION
  Report Type: 
  Country: None (occurrence: None)
  Receive Date: 20100423
  Receipt Date: 20100423
  Transmission Date: 20101027
  Serious: Yes (Hospitalization)
  Sender: FDA-Public Use
  Company Number: None

PATIENT
  Age: 93 Year
  Sex: Female
  Weight: 58.6 kg

DRUGS (16)
  1. COUMADIN [Suspect]
     Indication: ATRIAL FIBRILLATION
     Dosage: 5MG DAILY PO
     Route: 048
  2. ASPIRIN [Suspect]
     Indication: DEEP VEIN THROMBOSIS
     Dosage: 81MG DAILY PO
     Route: 048
  3. ASPIRIN [Suspect]
     Indication: TRANSIENT ISCHAEMIC ATTACK
     Dosage: 81MG DAILY PO
     Route: 048
  4. BENTYL [Concomitant]
  5. XALATAN [Concomitant]
  6. CETIRIZINE HCL [Concomitant]
  7. NEXIUM [Concomitant]
  8. BACTRIM [Concomitant]
  9. TIMEDOL [Concomitant]
  10. TYLENOL-500 [Concomitant]
  11. LUNESTA [Concomitant]
  12. ZOCOR [Concomitant]
  13. TOPROL-XL [Concomitant]
  14. NITROGLYCERIN [Concomitant]
  15. FUROSEMIDE [Concomitant]
  16. LOTREL [Concomitant]

REACTIONS (9)
  - BRAIN HERNIATION [None]
  - CONVULSION [None]
  - FALL [None]
  - HEADACHE [None]
  - HEMIPARESIS [None]
  - INCORRECT DOSE ADMINISTERED [None]
  - LUNG DISORDER [None]
  - MENTAL STATUS CHANGES [None]
  - SUBDURAL HAEMORRHAGE [None]
